FAERS Safety Report 24883960 (Version 2)
Quarter: 2025Q1

REPORT INFORMATION
  Report Type: Spontaneous
  Country: TR (occurrence: TR)
  Receive Date: 20250124
  Receipt Date: 20250226
  Transmission Date: 20250409
  Serious: Yes (Other)
  Sender: ASTELLAS
  Company Number: TR-ASTELLAS-2023US006821

PATIENT
  Age: 24 Year
  Sex: Male
  Weight: 40 kg

DRUGS (7)
  1. XOSPATA [Suspect]
     Active Substance: GILTERITINIB
     Indication: Acute myeloid leukaemia recurrent
     Route: 065
     Dates: start: 20221104, end: 20221201
  2. XOSPATA [Suspect]
     Active Substance: GILTERITINIB
     Indication: FLT3 gene mutation
     Route: 065
     Dates: start: 20221220, end: 20230117
  3. XOSPATA [Suspect]
     Active Substance: GILTERITINIB
     Route: 065
     Dates: start: 20240421
  4. XOSPATA [Suspect]
     Active Substance: GILTERITINIB
     Route: 065
  5. XOSPATA [Suspect]
     Active Substance: GILTERITINIB
     Route: 065
  6. TACROLIMUS [Suspect]
     Active Substance: TACROLIMUS
     Indication: Prophylaxis against graft versus host disease
     Route: 048
     Dates: start: 202208
  7. TACROLIMUS [Suspect]
     Active Substance: TACROLIMUS
     Route: 048

REACTIONS (36)
  - Loss of consciousness [Recovered/Resolved]
  - Thrombocytopenia [Recovered/Resolved]
  - Hypotension [Recovered/Resolved]
  - Pyrexia [Recovered/Resolved]
  - Subcutaneous abscess [Recovering/Resolving]
  - Nausea [Recovered/Resolved]
  - Feeding disorder [Recovering/Resolving]
  - Haemoglobin decreased [Recovered/Resolved]
  - Hypoalbuminaemia [Recovered/Resolved]
  - Blood folate decreased [Recovered/Resolved]
  - Vitamin B12 decreased [Recovered/Resolved]
  - Oesophageal candidiasis [Unknown]
  - Chloroma [Unknown]
  - Asthenia [Recovered/Resolved]
  - Staphylococcal abscess [Recovered/Resolved]
  - Depressed mood [Recovered/Resolved]
  - Increased appetite [Recovered/Resolved]
  - Insomnia [Recovered/Resolved]
  - Livedo reticularis [Recovered/Resolved]
  - Dry skin [Recovered/Resolved]
  - Transaminases increased [Recovered/Resolved]
  - Hepatic steatosis [Recovered/Resolved]
  - Pityriasis rosea [Recovered/Resolved]
  - Myalgia [Recovered/Resolved]
  - Muscular weakness [Recovered/Resolved]
  - Blood electrolytes decreased [Recovered/Resolved]
  - Weight increased [Not Recovered/Not Resolved]
  - Muscular weakness [Recovering/Resolving]
  - Mobility decreased [Unknown]
  - Alopecia [Unknown]
  - Depressive symptom [Recovered/Resolved]
  - Anxiety [Recovered/Resolved]
  - Pruritus [Unknown]
  - General physical health deterioration [Recovering/Resolving]
  - Blood creatine phosphokinase increased [Recovered/Resolved]
  - Off label use [Unknown]

NARRATIVE: CASE EVENT DATE: 20220101
